FAERS Safety Report 20018595 (Version 2)
Quarter: 2021Q4

REPORT INFORMATION
  Report Type: Spontaneous
  Country: US (occurrence: US)
  Receive Date: 20211101
  Receipt Date: 20211115
  Transmission Date: 20220303
  Serious: No
  Sender: FDA-Public Use
  Company Number: US-TEVA-2021-US-1968687

PATIENT
  Age: 9 Month
  Sex: Female

DRUGS (1)
  1. NYSTATIN [Suspect]
     Active Substance: NYSTATIN
     Indication: Dermatitis diaper
     Dosage: STRENGTH: 100000 UNITS / G
     Route: 061

REACTIONS (2)
  - Swelling [Unknown]
  - Product quality issue [Unknown]

NARRATIVE: CASE EVENT DATE: 20211015
